FAERS Safety Report 11543233 (Version 2)
Quarter: 2015Q4

REPORT INFORMATION
  Report Type: Spontaneous
  Country: US (occurrence: US)
  Receive Date: 20150923
  Receipt Date: 20151007
  Transmission Date: 20160304
  Serious: Yes (Death, Life-Threatening, Hospitalization)
  Sender: FDA-Public Use
  Company Number: US-AMNEAL PHARMACEUTICALS-2015AMN00012

PATIENT
  Age: 82 Year
  Sex: Male
  Weight: 85.99 kg

DRUGS (5)
  1. NAPROXEN. [Suspect]
     Active Substance: NAPROXEN
     Indication: OSTEOARTHRITIS
     Dosage: UNK, 3X/DAY
     Route: 048
     Dates: start: 20120324, end: 20150723
  2. NAPROXEN. [Suspect]
     Active Substance: NAPROXEN
     Indication: RHEUMATOID ARTHRITIS
  3. NEXIUM [Concomitant]
     Active Substance: ESOMEPRAZOLE MAGNESIUM
     Dosage: 40 MG, 1X/DAY
     Dates: start: 20120324, end: 20150723
  4. CELECOXIB; IBUPROFEN; PLACEBO [Suspect]
     Active Substance: CELECOXIB\IBUPROFEN\PLACEBO
     Indication: OSTEOARTHRITIS
     Dosage: UNK, 3X/DAY
     Route: 048
     Dates: start: 20120324, end: 20150723
  5. CELECOXIB; IBUPROFEN; PLACEBO [Suspect]
     Active Substance: CELECOXIB\IBUPROFEN\PLACEBO
     Indication: RHEUMATOID ARTHRITIS

REACTIONS (3)
  - Cardiogenic shock [Fatal]
  - Renal failure [Fatal]
  - Coronary artery disease [Fatal]

NARRATIVE: CASE EVENT DATE: 20150723
